FAERS Safety Report 23068726 (Version 3)
Quarter: 2023Q4

REPORT INFORMATION
  Report Type: Spontaneous
  Country: US (occurrence: US)
  Receive Date: 20231016
  Receipt Date: 20231109
  Transmission Date: 20240109
  Serious: Yes (Other)
  Sender: FDA-Public Use
  Company Number: US-JNJFOC-20231011310

PATIENT
  Age: 68 Year
  Sex: Male
  Weight: 96.7 kg

DRUGS (13)
  1. CARVYKTI [Suspect]
     Active Substance: CILTACABTAGENE AUTOLEUCEL
     Indication: Plasma cell myeloma
     Route: 042
     Dates: start: 20230905
  2. MELPHALAN [Concomitant]
     Active Substance: MELPHALAN
     Dates: start: 20150702
  3. ACYCLOVIR [Concomitant]
     Active Substance: ACYCLOVIR
     Indication: Prophylaxis
     Dates: start: 20221009
  4. ACYCLOVIR [Concomitant]
     Active Substance: ACYCLOVIR
     Dosage: 5 TIMES A DAY
     Dates: start: 20230930, end: 20231010
  5. DEXTRAN [Concomitant]
     Active Substance: DEXTRAN
     Dosage: 0.1-0.3 %
     Route: 047
     Dates: start: 20230930, end: 20231010
  6. ALBUTEROL [Concomitant]
     Active Substance: ALBUTEROL
     Indication: Dyspnoea
     Dosage: 90 MCG/ACTUATION?I2 PUFFS, INHALATION, EVERY 6 HOURS PRN,NHALE 2 PUFFS INTO LUNGS EVERY 4 ?HOURS AS
  7. ALBUTEROL [Concomitant]
     Active Substance: ALBUTEROL
     Indication: Wheezing
  8. FLUCONAZOLE [Concomitant]
     Active Substance: FLUCONAZOLE
     Route: 048
  9. LEVETIRACETAM [Concomitant]
     Active Substance: LEVETIRACETAM
     Indication: Seizure prophylaxis
     Route: 048
  10. LEVOFLOXACIN [Concomitant]
     Active Substance: LEVOFLOXACIN
     Route: 048
  11. TAMSULOSIN [Concomitant]
     Active Substance: TAMSULOSIN
     Dosage: EVERY ?BEDTIME EVERY NIGHT
  12. METOPROLOL [Concomitant]
     Active Substance: METOPROLOL
     Indication: Cardiovascular event prophylaxis
  13. BACTRIM [Concomitant]
     Active Substance: SULFAMETHOXAZOLE\TRIMETHOPRIM
     Dosage: 800-160 MG TABLET, TAKE 1 TABLET BY MOUTH EVERY MONDAY, WEDNESDAY ?AND FRIDAY. - ORAL
     Dates: start: 20231009

REACTIONS (5)
  - Bell^s palsy [Recovering/Resolving]
  - Cytokine release syndrome [Unknown]
  - Balance disorder [Unknown]
  - Insomnia [Unknown]
  - Memory impairment [Unknown]

NARRATIVE: CASE EVENT DATE: 20230927
